FAERS Safety Report 24147488 (Version 1)
Quarter: 2024Q3

REPORT INFORMATION
  Report Type: Spontaneous
  Country: US (occurrence: US)
  Receive Date: 20240729
  Receipt Date: 20240729
  Transmission Date: 20241017
  Serious: Yes (Other)
  Sender: BAYER
  Company Number: US-BAYER-2024A107677

PATIENT
  Age: 67 Year
  Sex: Female

DRUGS (1)
  1. ALKA-SELTZER PLUS COLD AND COUGH FORMULA [Suspect]
     Active Substance: ACETAMINOPHEN\CHLORPHENIRAMINE\DEXTROMETHORPHAN\PHENYLEPHRINE
     Dosage: 1 DF
     Route: 048
     Dates: start: 20240724, end: 20240724

REACTIONS (1)
  - Choking [Recovering/Resolving]

NARRATIVE: CASE EVENT DATE: 20240724
